FAERS Safety Report 7599362-6 (Version None)
Quarter: 2011Q3

REPORT INFORMATION
  Report Type: 
  Country: None (occurrence: None)
  Receive Date: 20110711
  Receipt Date: 20110608
  Transmission Date: 20111222
  Serious: Yes (Hospitalization)
  Sender: FDA-Public Use
  Company Number: US-BAYER-2011-050008

PATIENT
  Age: 42 Year
  Sex: Male

DRUGS (2)
  1. SARGRAMOSTIM [Suspect]
     Indication: NON-HODGKIN'S LYMPHOMA
     Dosage: UNK UNK, TIW
     Route: 058
     Dates: start: 20110419
  2. RITUXIMAB [Suspect]
     Indication: NON-HODGKIN'S LYMPHOMA
     Dosage: UNK UNK, OW
     Route: 042

REACTIONS (2)
  - ANAL ABSCESS [None]
  - MUSCULOSKELETAL PAIN [None]
